FAERS Safety Report 5195404-6 (Version None)
Quarter: 2006Q4

REPORT INFORMATION
  Report Type: 
  Country: None (occurrence: None)
  Receive Date: 20061229
  Receipt Date: 20061220
  Transmission Date: 20070319
  Serious: Yes (Hospitalization)
  Sender: FDA-Public Use
  Company Number: US-PFIZER INC-2006155924

PATIENT
  Age: 56 Year
  Sex: Female
  Weight: 99.8 kg

DRUGS (2)
  1. NICOTINE [Suspect]
     Indication: SMOKING CESSATION THERAPY
     Dosage: TEXT:UNKNOWN
     Dates: start: 20040501, end: 20051202
  2. ALL OTHER THERAPEUTIC PRODUCTS [Concomitant]

REACTIONS (4)
  - CHEST PAIN [None]
  - DYSGEUSIA [None]
  - GLOSSODYNIA [None]
  - PAIN IN EXTREMITY [None]
